FAERS Safety Report 13924410 (Version 3)
Quarter: 2017Q3

REPORT INFORMATION
  Report Type: Report from Study
  Country: CO (occurrence: CO)
  Receive Date: 20170831
  Receipt Date: 20170927
  Transmission Date: 20171127
  Serious: Yes (Hospitalization)
  Sender: FDA-Public Use
  Company Number: PHHY2017CO094697

PATIENT
  Age: 71 Year
  Sex: Male
  Weight: 53 kg

DRUGS (3)
  1. ENALAPRIL [Suspect]
     Active Substance: ENALAPRIL
     Indication: HYPERTENSION
     Dosage: UNK
     Route: 065
  2. RIVAROXABAN [Concomitant]
     Active Substance: RIVAROXABAN
     Indication: PRODUCT USED FOR UNKNOWN INDICATION
     Route: 065
  3. ENTRESTO [Suspect]
     Active Substance: SACUBITRIL\VALSARTAN
     Indication: CARDIAC FAILURE
     Dosage: 50 MG, Q12H
     Route: 048
     Dates: start: 20170305

REACTIONS (16)
  - Hypotension [Unknown]
  - Concomitant disease aggravated [Not Recovered/Not Resolved]
  - Insomnia [Unknown]
  - Inflammation [Unknown]
  - Renal disorder [Not Recovered/Not Resolved]
  - Feeling abnormal [Unknown]
  - Chest pain [Unknown]
  - Ascites [Unknown]
  - Lung disorder [Not Recovered/Not Resolved]
  - Fatigue [Unknown]
  - Gastritis [Unknown]
  - Fluid retention [Unknown]
  - Thrombosis [Unknown]
  - Cardiac disorder [Not Recovered/Not Resolved]
  - Contraindicated product administered [Unknown]
  - Crying [Unknown]

NARRATIVE: CASE EVENT DATE: 20170603
